FAERS Safety Report 23450340 (Version 1)
Quarter: 2024Q1

REPORT INFORMATION
  Report Type: Spontaneous
  Country: US (occurrence: US)
  Receive Date: 20240129
  Receipt Date: 20240129
  Transmission Date: 20240409
  Serious: Yes (Hospitalization, Other)
  Sender: FDA-Public Use
  Company Number: US-AUROBINDO-AUR-APL-2012-04615

PATIENT
  Age: 2 Year
  Sex: Female

DRUGS (6)
  1. DONEPEZIL HYDROCHLORIDE [Suspect]
     Active Substance: DONEPEZIL HYDROCHLORIDE
     Indication: Product used for unknown indication
     Dosage: UNK UNK,UNK,
     Route: 048
  2. MEMANTINE [Suspect]
     Active Substance: MEMANTINE
     Indication: Product used for unknown indication
     Dosage: UNK UNK,UNK,
     Route: 048
  3. LEVETIRACETAM [Suspect]
     Active Substance: LEVETIRACETAM
     Indication: Drug level decreased
     Dosage: UNK
     Route: 065
  4. LEVETIRACETAM [Suspect]
     Active Substance: LEVETIRACETAM
     Indication: Encephalopathy
  5. LEVETIRACETAM [Suspect]
     Active Substance: LEVETIRACETAM
     Indication: Overdose
  6. LEVETIRACETAM [Suspect]
     Active Substance: LEVETIRACETAM
     Indication: Seizure like phenomena

REACTIONS (15)
  - Encephalopathy [Recovered/Resolved]
  - Agitation [Recovering/Resolving]
  - Hallucination, visual [Recovering/Resolving]
  - Seizure [Recovering/Resolving]
  - Sedation [Recovering/Resolving]
  - Eye movement disorder [Recovering/Resolving]
  - Respiratory rate increased [Recovering/Resolving]
  - Accidental exposure to product by child [Recovered/Resolved]
  - Lethargy [Recovering/Resolving]
  - Heart rate increased [Recovering/Resolving]
  - Blood pressure decreased [Recovering/Resolving]
  - Tachypnoea [Recovering/Resolving]
  - Pyrexia [Recovering/Resolving]
  - Accidental overdose [Recovered/Resolved]
  - Unintentional use for unapproved indication [Unknown]
